FAERS Safety Report 4406448-3 (Version None)
Quarter: 2004Q3

REPORT INFORMATION
  Report Type: 
  Country: None (occurrence: None)
  Receive Date: 20040723
  Receipt Date: 20030805
  Transmission Date: 20050211
  Serious: Yes (Other)
  Sender: FDA-Public Use
  Company Number: US-GLAXOSMITHKLINE-A0419508A

PATIENT

DRUGS (1)
  1. AVANDIA [Suspect]

REACTIONS (1)
  - PLEURAL EFFUSION [None]
